FAERS Safety Report 7920912 (Version 4)
Quarter: 2012Q4

REPORT INFORMATION
  Report Type: 
  Country: US (occurrence: US)
  Receive Date: 20110429
  Receipt Date: 20121212
  Transmission Date: 20130627
  Serious: No
  Sender: FDA-Public Use
  Company Number: US-ASTRAZENECA-2010SE30303

PATIENT
  Age: 58 Year
  Sex: Female

DRUGS (15)
  1. NEXIUM [Suspect]
     Route: 048
     Dates: end: 200911
  2. NEXIUM [Suspect]
     Route: 048
     Dates: start: 200911
  3. NEXIUM [Suspect]
     Route: 048
  4. OMEPRAZOLE [Suspect]
     Route: 048
     Dates: start: 201004
  5. CRESTOR [Suspect]
     Route: 048
  6. CYMBALTA [Concomitant]
  7. CITALOPRAM [Concomitant]
  8. METOPROLOL [Concomitant]
  9. RAMIPRIL [Concomitant]
  10. METHYLPHENIDATE [Concomitant]
  11. SUCRALFATE [Concomitant]
  12. OXYCONTIN [Concomitant]
  13. PERCOCET [Concomitant]
  14. NASONEX [Concomitant]
  15. NYSTATIN [Concomitant]

REACTIONS (7)
  - Oesophageal disorder [Unknown]
  - Oesophageal ulcer [Unknown]
  - Back injury [Unknown]
  - Dysphagia [Unknown]
  - Feeling abnormal [Unknown]
  - Malaise [Unknown]
  - Drug dose omission [Unknown]
